FAERS Safety Report 9151829 (Version 1)
Quarter: 2013Q1

REPORT INFORMATION
  Report Type: Report from Study
  Country: GB (occurrence: GB)
  Receive Date: 20130308
  Receipt Date: 20130308
  Transmission Date: 20140127
  Serious: Yes (Congenital Anomaly)
  Sender: FDA-Public Use
  Company Number: GB-GLAXOSMITHKLINE-A1014817A

PATIENT
  Sex: Female
  Weight: 2.6 kg

DRUGS (3)
  1. LEVETIRACETAM [Suspect]
     Dosage: 2000MG PER DAY
     Route: 064
  2. LAMOTRIGINE [Suspect]
     Dosage: 450MG PER DAY
     Route: 064
  3. PHENYTOIN [Suspect]
     Dosage: 300MG PER DAY
     Route: 064

REACTIONS (4)
  - Hypotonia neonatal [Unknown]
  - Dysmorphism [Unknown]
  - Double ureter [Unknown]
  - Foetal exposure during pregnancy [Unknown]
